FAERS Safety Report 25215168 (Version 3)
Quarter: 2025Q2

REPORT INFORMATION
  Report Type: Spontaneous
  Country: JP (occurrence: JP)
  Receive Date: 20250418
  Receipt Date: 20250528
  Transmission Date: 20250717
  Serious: Yes (Life-Threatening)
  Sender: MERCK SHARP & DOHME LLC
  Company Number: JP-009507513-2277546

PATIENT
  Age: 68 Year
  Sex: Female
  Weight: 44.6 kg

DRUGS (25)
  1. SUGAMMADEX [Suspect]
     Active Substance: SUGAMMADEX
     Indication: Neuromuscular blockade reversal
     Route: 042
     Dates: start: 20250403, end: 20250403
  2. MAGNESIUM OXIDE [Concomitant]
     Active Substance: MAGNESIUM OXIDE
     Indication: Product used for unknown indication
     Dosage: 330 MG, AFTER BREAKFAST
     Route: 048
  3. AMITIZA [Concomitant]
     Active Substance: LUBIPROSTONE
     Indication: Product used for unknown indication
     Dosage: 12  G, AFTER DINNER, INITIATION OF ORAL ADMINISTRATION WAS SCHEDULED FOR AFTER SURGERY
     Route: 048
  4. ISOTONIC SODIUM CHLORIDE SOLUTION [Concomitant]
     Active Substance: SODIUM CHLORIDE
     Indication: Cushing^s syndrome
     Route: 065
     Dates: start: 20250403
  5. ISOTONIC SODIUM CHLORIDE SOLUTION [Concomitant]
     Active Substance: SODIUM CHLORIDE
     Indication: Cushing^s syndrome
     Route: 065
     Dates: start: 20250403
  6. ISOTONIC SODIUM CHLORIDE SOLUTION [Concomitant]
     Active Substance: SODIUM CHLORIDE
     Indication: Cushing^s syndrome
     Route: 065
     Dates: start: 20250403
  7. ISOTONIC SODIUM CHLORIDE SOLUTION [Concomitant]
     Active Substance: SODIUM CHLORIDE
     Indication: Cushing^s syndrome
     Route: 065
     Dates: start: 20250403
  8. ISOTONIC SODIUM CHLORIDE SOLUTION [Concomitant]
     Active Substance: SODIUM CHLORIDE
     Indication: Cushing^s syndrome
     Route: 065
     Dates: start: 20250403
  9. CALCIUM GLUCONATE\DEXTROSE\MAGNESIUM CHLORIDE\POTASSIUM CHLORIDE\SODIU [Concomitant]
     Active Substance: CALCIUM GLUCONATE\DEXTROSE\MAGNESIUM CHLORIDE\POTASSIUM CHLORIDE\SODIUM ACETATE\SODIUM CHLORIDE\TRIS
     Indication: Cushing^s syndrome
     Route: 042
     Dates: start: 20250403
  10. BICANATE [Concomitant]
     Active Substance: CALCIUM CHLORIDE\MAGNESIUM CHLORIDE\POTASSIUM CHLORIDE\SODIUM BICARBONATE\SODIUM CHLORIDE\TRISODIUM
     Indication: Cushing^s syndrome
     Route: 042
     Dates: start: 20250403
  11. CEFAZOLIN SODIUM [Concomitant]
     Active Substance: CEFAZOLIN SODIUM
     Indication: Cushing^s syndrome
     Route: 042
     Dates: start: 20250403
  12. AMIZET-B [Concomitant]
     Indication: Cushing^s syndrome
     Route: 042
     Dates: start: 20250403
  13. DEXAMETHASONE SODIUM PHOSPHATE [Concomitant]
     Active Substance: DEXAMETHASONE SODIUM PHOSPHATE
     Indication: Cushing^s syndrome
     Route: 042
     Dates: start: 20250403
  14. EPHEDRINE HYDROCHLORIDE [Concomitant]
     Active Substance: EPHEDRINE HYDROCHLORIDE
     Indication: Cushing^s syndrome
     Route: 042
     Dates: start: 20250403
  15. ONDANSETRON HYDROCHLORIDE HYDRATE [Concomitant]
     Indication: Cushing^s syndrome
     Route: 042
     Dates: start: 20250403
  16. ACETAMINOPHEN [Concomitant]
     Active Substance: ACETAMINOPHEN
     Indication: Cushing^s syndrome
     Route: 042
     Dates: start: 20250403
  17. PHENYLEPHRINE HYDROCHLORIDE [Concomitant]
     Active Substance: PHENYLEPHRINE HYDROCHLORIDE
     Indication: Cushing^s syndrome
     Route: 042
     Dates: start: 20250403
  18. PROPOFOL [Concomitant]
     Active Substance: PROPOFOL
     Indication: Anaesthesia procedure
     Route: 042
     Dates: start: 20250403
  19. REMIFENTANIL HYDROCHLORIDE [Concomitant]
     Active Substance: REMIFENTANIL HYDROCHLORIDE
     Indication: Anaesthesia procedure
     Route: 042
     Dates: start: 20250403
  20. FENTANYL CITRATE [Concomitant]
     Active Substance: FENTANYL CITRATE
     Indication: Anaesthesia procedure
     Route: 042
     Dates: start: 20250403
  21. DROPERIDOL [Concomitant]
     Active Substance: DROPERIDOL
     Indication: Anaesthesia procedure
     Route: 042
     Dates: start: 20250403
  22. NIFEDIPINE [Concomitant]
     Active Substance: NIFEDIPINE
     Indication: Product used for unknown indication
     Route: 048
  23. NIFEDIPINE [Concomitant]
     Active Substance: NIFEDIPINE
     Indication: Product used for unknown indication
     Dosage: 80 MG, AFTER BREAKFAST AND DINNER
     Route: 048
  24. SPIRONOLACTONE [Concomitant]
     Active Substance: SPIRONOLACTONE
     Indication: Product used for unknown indication
     Dosage: 25 MG
     Route: 048
  25. ROCURONIUM BROMIDE [Suspect]
     Active Substance: ROCURONIUM BROMIDE
     Indication: Muscle relaxant therapy
     Route: 042
     Dates: start: 20250403, end: 20250403

REACTIONS (4)
  - Respiratory arrest [Recovered/Resolved]
  - Drug ineffective [Unknown]
  - Hypoxic-ischaemic encephalopathy [Recovered/Resolved]
  - Recurrence of neuromuscular blockade [Recovered/Resolved]

NARRATIVE: CASE EVENT DATE: 20250403
